FAERS Safety Report 19157267 (Version 2)
Quarter: 2021Q2

REPORT INFORMATION
  Report Type: Spontaneous
  Country: US (occurrence: US)
  Receive Date: 20210420
  Receipt Date: 20210601
  Transmission Date: 20210717
  Serious: Yes (Hospitalization, Other)
  Sender: FDA-Public Use
  Company Number: US-ROCHE-2807092

PATIENT
  Age: 39 Year
  Sex: Female

DRUGS (4)
  1. ELIQUIS [Concomitant]
     Active Substance: APIXABAN
     Dosage: 1 TABLET BY MOUTH TWICE?A DAY
  2. GAVRETO [Suspect]
     Active Substance: PRALSETINIB
     Route: 048
     Dates: start: 20200114, end: 20200119
  3. GAVRETO [Suspect]
     Active Substance: PRALSETINIB
     Route: 048
     Dates: start: 202104
  4. GAVRETO [Suspect]
     Active Substance: PRALSETINIB
     Indication: NON-SMALL CELL LUNG CANCER
     Dosage: 4 CAPSULES BY MOUTH ONCE DAILY ON EMPTY STOMACH, T HOUR BEFORE OR 2 HOURS AFTER  FOOD
     Route: 048
     Dates: start: 20210311

REACTIONS (4)
  - Neutropenia [Unknown]
  - Dyspnoea [Unknown]
  - Pulmonary embolism [Unknown]
  - Leukopenia [Unknown]

NARRATIVE: CASE EVENT DATE: 20210406
